FAERS Safety Report 10453382 (Version 1)
Quarter: 2014Q3

REPORT INFORMATION
  Report Type: Spontaneous
  Country: JP (occurrence: JP)
  Receive Date: 20140915
  Receipt Date: 20140915
  Transmission Date: 20150326
  Serious: Yes (Death, Hospitalization)
  Sender: FDA-Public Use
  Company Number: PHHY2014JP112333

PATIENT
  Age: 68 Year
  Sex: Female

DRUGS (11)
  1. CYTARABINE. [Suspect]
     Active Substance: CYTARABINE
     Dosage: 10 MG/M2 FOR 12 HOUR ON DAYS 1-14
  2. IDARUBICIN [Suspect]
     Active Substance: IDARUBICIN
  3. GEMTUZUMAB OZOGAMICIN [Suspect]
     Active Substance: GEMTUZUMAB OZOGAMICIN
     Dosage: 9 MG/M2 ON DAYS 1 AND 15
  4. CYTARABINE. [Suspect]
     Active Substance: CYTARABINE
     Dosage: 75 MG/M2 ON DAYS 1-7
  5. MITOXANTRONE [Suspect]
     Active Substance: MITOXANTRONE HYDROCHLORIDE
     Dosage: 6 MG/M2 ON DAYS 1-3
  6. ETOPOSIDE. [Suspect]
     Active Substance: ETOPOSIDE
     Dosage: 100 MG/BODY ON DAYS 1-5
  7. CYTARABINE. [Suspect]
     Active Substance: CYTARABINE
     Dosage: 100 MG/BODY ON DAYS 1-7
  8. GEMTUZUMAB OZOGAMICIN [Suspect]
     Active Substance: GEMTUZUMAB OZOGAMICIN
     Dosage: 6 MG/M2 ON DAY 10
  9. ACLARUBICIN [Suspect]
     Active Substance: ACLARUBICIN
     Dosage: 14 MG/M2 ON DAYS 1-4
  10. MITOXANTRONE [Suspect]
     Active Substance: MITOXANTRONE HYDROCHLORIDE
     Dosage: 8 MG/BODY ON DAYS 1-3
  11. ETOPOSIDE. [Suspect]
     Active Substance: ETOPOSIDE
     Dosage: 75 MG/M2 ON DAYS 1-5

REACTIONS (9)
  - Febrile neutropenia [Unknown]
  - Haemorrhage [Unknown]
  - Bone marrow failure [Unknown]
  - Pulmonary embolism [Unknown]
  - General physical health deterioration [Unknown]
  - Thrombocytopenia [Unknown]
  - Death [Fatal]
  - Deep vein thrombosis [Unknown]
  - Myeloid leukaemia in remission [Unknown]

NARRATIVE: CASE EVENT DATE: 200703
